FAERS Safety Report 16424431 (Version 1)
Quarter: 2019Q2

REPORT INFORMATION
  Report Type: Spontaneous
  Country: FR (occurrence: FR)
  Receive Date: 20190613
  Receipt Date: 20190613
  Transmission Date: 20190711
  Serious: Yes (Hospitalization, Other)
  Sender: FDA-Public Use
  Company Number: FR-AMGEN-FRASP2019093748

PATIENT
  Age: 62 Year
  Sex: Male
  Weight: 73 kg

DRUGS (4)
  1. VINCRISTINE SULFATE. [Suspect]
     Active Substance: VINCRISTINE SULFATE
     Indication: ANGIOIMMUNOBLASTIC T-CELL LYMPHOMA
     Dosage: 2 MILLIGRAM
     Route: 042
     Dates: start: 20190507, end: 20190507
  2. DOXORUBICINE [DOXORUBICIN] [Suspect]
     Active Substance: DOXORUBICIN
     Indication: ANGIOIMMUNOBLASTIC T-CELL LYMPHOMA
     Dosage: 94 MILLIGRAM
     Route: 042
     Dates: start: 20190507, end: 20190507
  3. CYCLOPHOSPHAMIDE. [Suspect]
     Active Substance: CYCLOPHOSPHAMIDE
     Indication: ANGIOIMMUNOBLASTIC T-CELL LYMPHOMA
     Dosage: 1400 MILLIGRAM
     Route: 042
     Dates: start: 20190507, end: 20190507
  4. NEULASTA [Suspect]
     Active Substance: PEGFILGRASTIM
     Indication: ANGIOIMMUNOBLASTIC T-CELL LYMPHOMA
     Dosage: 1 DOSAGE FORM, ONE TIME DOSE
     Route: 065
     Dates: start: 20190509, end: 20190509

REACTIONS (2)
  - Anaphylactic shock [Recovered/Resolved]
  - Epistaxis [Recovered/Resolved]

NARRATIVE: CASE EVENT DATE: 20190509
